FAERS Safety Report 19305334 (Version 2)
Quarter: 2021Q2

REPORT INFORMATION
  Report Type: Spontaneous
  Country: GB (occurrence: GB)
  Receive Date: 20210525
  Receipt Date: 20210622
  Transmission Date: 20210717
  Serious: Yes (Hospitalization, Other)
  Sender: FDA-Public Use
  Company Number: NVSC2021GB113365

PATIENT
  Age: 26 Year
  Sex: Female

DRUGS (1)
  1. PARACETAMOL [Suspect]
     Active Substance: ACETAMINOPHEN
     Indication: TENSION HEADACHE
     Dosage: 1 G, QID
     Route: 065

REACTIONS (5)
  - Toxicity to various agents [Recovering/Resolving]
  - Hyperemesis gravidarum [Recovering/Resolving]
  - Liver function test abnormal [Recovering/Resolving]
  - Condition aggravated [Recovering/Resolving]
  - Maternal exposure during pregnancy [Unknown]
